FAERS Safety Report 18368381 (Version 4)
Quarter: 2020Q4

REPORT INFORMATION
  Report Type: Report from Study
  Country: EG (occurrence: EG)
  Receive Date: 20201009
  Receipt Date: 20201230
  Transmission Date: 20210114
  Serious: Yes (Other)
  Sender: FDA-Public Use
  Company Number: EG-SEATTLE GENETICS-2020SGN01015

PATIENT
  Sex: Female

DRUGS (1)
  1. BRENTUXIMAB VEDOTIN [Suspect]
     Active Substance: BRENTUXIMAB VEDOTIN
     Indication: HODGKIN^S DISEASE REFRACTORY
     Dosage: UNK
     Route: 042
     Dates: start: 20191126

REACTIONS (9)
  - Renal disorder [Unknown]
  - Hepatic enzyme increased [Unknown]
  - Gastrointestinal infection [Unknown]
  - Hypotension [Unknown]
  - Haemoglobin decreased [Unknown]
  - COVID-19 [Recovered/Resolved]
  - Diarrhoea [Unknown]
  - COVID-19 pneumonia [Recovered/Resolved]
  - Bronchitis [Unknown]
